FAERS Safety Report 4996777-7 (Version None)
Quarter: 2006Q2

REPORT INFORMATION
  Report Type: 
  Country: None (occurrence: None)
  Receive Date: 20060509
  Receipt Date: 20060126
  Transmission Date: 20061013
  Serious: Yes (Death, Hospitalization, Other)
  Sender: FDA-Public Use
  Company Number: US-MERCK-0601USA03244

PATIENT
  Age: 75 Year
  Sex: Female
  Weight: 50 kg

DRUGS (31)
  1. VIOXX [Suspect]
     Indication: RHEUMATOID ARTHRITIS
     Route: 048
     Dates: start: 19991001, end: 20031101
  2. VIOXX [Suspect]
     Indication: OSTEOARTHRITIS
     Route: 048
     Dates: start: 19991001, end: 20031101
  3. ACETAMINOPHEN AND HYDROCODONE BITARTRATE [Concomitant]
     Route: 065
     Dates: start: 20001024, end: 20010417
  4. PRINIVIL [Concomitant]
     Route: 048
     Dates: start: 19990101, end: 20011101
  5. HYDROCHLOROTHIAZIDE [Concomitant]
     Route: 065
     Dates: start: 20021001, end: 20021101
  6. PLAVIX [Concomitant]
     Route: 065
     Dates: start: 20020801, end: 20031206
  7. AGGRENOX [Concomitant]
     Route: 065
     Dates: start: 20021001, end: 20021001
  8. DURAGESIC-100 [Concomitant]
     Indication: BACK PAIN
     Route: 065
  9. ESTRACE [Concomitant]
     Route: 065
     Dates: start: 20010101, end: 20010201
  10. ESTRADIOL [Concomitant]
     Route: 065
     Dates: start: 19980101, end: 20011101
  11. ZOLOFT [Concomitant]
     Route: 065
     Dates: start: 20030922
  12. DIAZEPAM [Concomitant]
     Route: 065
     Dates: start: 20011201, end: 20011201
  13. HYDROXYZINE PAMOATE [Concomitant]
     Route: 065
     Dates: start: 20010401, end: 20010401
  14. NEURONTIN [Concomitant]
     Route: 065
     Dates: start: 20000501, end: 20010401
  15. TRIMOX [Concomitant]
     Route: 065
  16. [THERAPY UNSPECIFIED] [Concomitant]
     Route: 065
  17. ENBREL [Concomitant]
     Route: 065
  18. HYCOCLEAR TUSS [Concomitant]
     Route: 065
  19. MEPERIDINE HYDROCHLORIDE [Concomitant]
     Route: 065
  20. ARAVA [Concomitant]
     Route: 065
  21. DRISDOL [Concomitant]
     Route: 065
  22. FOLIC ACID [Concomitant]
     Route: 065
  23. FOSAMAX [Concomitant]
     Route: 065
  24. PREDNISONE [Concomitant]
     Route: 065
  25. VITAMIN D (UNSPECIFIED) [Concomitant]
     Route: 065
  26. AMOXICILLIN [Concomitant]
     Route: 065
  27. AXID [Concomitant]
     Route: 065
  28. CARAFATE [Concomitant]
     Route: 065
  29. [THERAPY UNSPECIFIED] [Concomitant]
     Route: 065
  30. PROTONIX [Concomitant]
     Route: 065
  31. SONATA [Concomitant]
     Route: 065

REACTIONS (18)
  - ABDOMINAL PAIN [None]
  - ANOREXIA [None]
  - ARTHRALGIA [None]
  - BACTERIA STOOL IDENTIFIED [None]
  - CEREBROVASCULAR ACCIDENT [None]
  - CHEST PAIN [None]
  - COORDINATION ABNORMAL [None]
  - DEATH [None]
  - DIARRHOEA [None]
  - DIZZINESS [None]
  - HEADACHE [None]
  - HYPERTENSION [None]
  - LETHARGY [None]
  - PAIN IN EXTREMITY [None]
  - PYREXIA [None]
  - RENAL FAILURE [None]
  - SURGERY [None]
  - VISION BLURRED [None]
